FAERS Safety Report 9681729 (Version 1)
Quarter: 2013Q4

REPORT INFORMATION
  Report Type: Spontaneous
  Country: US (occurrence: US)
  Receive Date: 20131111
  Receipt Date: 20131111
  Transmission Date: 20140711
  Serious: Yes (Other)
  Sender: FDA-Public Use
  Company Number: US-GLAXOSMITHKLINE-A1049130A

PATIENT
  Sex: Female

DRUGS (1)
  1. PAXIL [Suspect]
     Indication: DEPRESSION
     Dosage: 12.5MG PER DAY
     Route: 048
     Dates: start: 2000

REACTIONS (3)
  - Renal impairment [Not Recovered/Not Resolved]
  - Blood creatine increased [Not Recovered/Not Resolved]
  - Blood urea increased [Not Recovered/Not Resolved]
